FAERS Safety Report 5231670-6 (Version None)
Quarter: 2007Q1

REPORT INFORMATION
  Report Type: 
  Country: None (occurrence: None)
  Receive Date: 20070202
  Receipt Date: 20070122
  Transmission Date: 20070707
  Serious: Yes (Hospitalization)
  Sender: FDA-Public Use
  Company Number: 231617

PATIENT
  Age: 63 Year
  Sex: Male

DRUGS (3)
  1. AVASTIN [Suspect]
     Indication: NON-SMALL CELL LUNG CANCER
     Dosage: 15 MG/KG, Q3W, INTRAVENOUS
     Route: 042
     Dates: start: 20050728, end: 20061026
  2. CARBOPLATIN [Suspect]
     Indication: NON-SMALL CELL LUNG CANCER
     Dosage: 6 AUC, Q3W, INTRAVENOUS
     Route: 042
     Dates: start: 20050728, end: 20061026
  3. PEMETREXED (PEMETREXED) [Suspect]
     Indication: NON-SMALL CELL LUNG CANCER
     Dosage: 500 MG/M2, Q3W, INTRAVENOUS
     Route: 042
     Dates: start: 20050728, end: 20061026

REACTIONS (3)
  - INTESTINAL OBSTRUCTION [None]
  - MALNUTRITION [None]
  - METASTASES TO GASTROINTESTINAL TRACT [None]
